FAERS Safety Report 4459000-8 (Version None)
Quarter: 2004Q3

REPORT INFORMATION
  Report Type: 
  Country: None (occurrence: None)
  Receive Date: 20040922
  Receipt Date: 20040922
  Transmission Date: 20050211
  Serious: No
  Sender: FDA-Public Use
  Company Number: None

PATIENT
  Age: 66 Year
  Sex: Female

DRUGS (4)
  1. PROPOXYPHENE [Suspect]
     Indication: POST PROCEDURAL PAIN
     Dosage: 2 TABS
     Dates: start: 20040703
  2. ATIVAN [Suspect]
  3. KLONOPIN [Suspect]
  4. PHENERGAN [Suspect]

REACTIONS (4)
  - CONFUSIONAL STATE [None]
  - FALL [None]
  - LETHARGY [None]
  - PSYCHOTIC DISORDER [None]
